FAERS Safety Report 4340397-4 (Version None)
Quarter: 2004Q2

REPORT INFORMATION
  Report Type: 
  Country: None (occurrence: None)
  Receive Date: 20040414
  Receipt Date: 20040401
  Transmission Date: 20050107
  Serious: No
  Sender: FDA-Public Use
  Company Number: BDI-006000

PATIENT
  Age: 50 Year
  Sex: Male

DRUGS (1)
  1. ISOVUE-300 [Suspect]
     Indication: COMPUTERISED TOMOGRAM
     Dosage: 120 ML ONCE IV
     Route: 042
     Dates: start: 20040331, end: 20040407

REACTIONS (1)
  - JAUNDICE [None]
